FAERS Safety Report 8991491 (Version 3)
Quarter: 2013Q2

REPORT INFORMATION
  Report Type: Spontaneous
  Country: US (occurrence: US)
  Receive Date: 20121231
  Receipt Date: 20130419
  Transmission Date: 20140414
  Serious: Yes (Hospitalization)
  Sender: FDA-Public Use
  Company Number: US-BIOGENIDEC-2012BI063229

PATIENT
  Sex: Female

DRUGS (1)
  1. AVONEX [Suspect]
     Indication: MULTIPLE SCLEROSIS
     Route: 030
     Dates: start: 20100808

REACTIONS (7)
  - Intervertebral disc protrusion [Recovered/Resolved]
  - Spinal column stenosis [Not Recovered/Not Resolved]
  - Procedural pain [Unknown]
  - Post procedural complication [Not Recovered/Not Resolved]
  - Injection site anaesthesia [Not Recovered/Not Resolved]
  - Back pain [Not Recovered/Not Resolved]
  - Pain in extremity [Not Recovered/Not Resolved]
